FAERS Safety Report 12188332 (Version 1)
Quarter: 2016Q1

REPORT INFORMATION
  Report Type: Spontaneous
  Country: US (occurrence: US)
  Receive Date: 20160317
  Receipt Date: 20160317
  Transmission Date: 20160526
  Serious: Yes (Hospitalization, Other)
  Sender: FDA-Public Use
  Company Number: US-AMGEN-USASP2016031845

PATIENT
  Age: 26 Year
  Sex: Female

DRUGS (2)
  1. IVABRADINE [Suspect]
     Active Substance: IVABRADINE
     Indication: POSTURAL ORTHOSTATIC TACHYCARDIA SYNDROME
     Dosage: UNK
     Route: 065
  2. IVABRADINE [Suspect]
     Active Substance: IVABRADINE
     Dosage: 250 MG, SINGLE
     Route: 048

REACTIONS (6)
  - Intentional overdose [Unknown]
  - Blood calcium decreased [Unknown]
  - Hypotension [Recovered/Resolved]
  - Blood potassium decreased [Unknown]
  - Blood urea decreased [Unknown]
  - Bradycardia [Recovered/Resolved]
